FAERS Safety Report 21957190 (Version 1)
Quarter: 2023Q1

REPORT INFORMATION
  Report Type: Spontaneous
  Country: US (occurrence: None)
  Receive Date: 20230203
  Receipt Date: 20230203
  Transmission Date: 20230418
  Serious: No
  Sender: FDA-Public Use
  Company Number: None

PATIENT
  Age: 35 Year
  Sex: Female
  Weight: 90 kg

DRUGS (4)
  1. NURTEC ODT [Suspect]
     Active Substance: RIMEGEPANT SULFATE
     Indication: Migraine
     Dosage: OTHER QUANTITY : 1 TABLET(S);?FREQUENCY : DAILY;?
     Route: 060
  2. Sumatriptan-Naproxen (as needed) [Concomitant]
  3. Ambien (as needed) [Concomitant]
  4. Flexeril (as needed) [Concomitant]

REACTIONS (3)
  - Burning sensation [None]
  - Ear discomfort [None]
  - Feeling hot [None]

NARRATIVE: CASE EVENT DATE: 20230105
